FAERS Safety Report 9731827 (Version 1)
Quarter: 2013Q4

REPORT INFORMATION
  Report Type: Report from Study
  Country: JP (occurrence: JP)
  Receive Date: 20131204
  Receipt Date: 20131204
  Transmission Date: 20140711
  Serious: No
  Sender: FDA-Public Use
  Company Number: JP-JNJFOC-20131201544

PATIENT
  Age: 36 Year
  Sex: Male
  Weight: 83 kg

DRUGS (15)
  1. STELARA [Suspect]
     Indication: PSORIASIS
     Route: 058
     Dates: start: 20111017, end: 20111017
  2. STELARA [Suspect]
     Indication: PSORIASIS
     Route: 058
     Dates: start: 20121218
  3. STELARA [Suspect]
     Indication: PSORIASIS
     Route: 058
     Dates: start: 20120319, end: 20120319
  4. STELARA [Suspect]
     Indication: PSORIASIS
     Route: 058
     Dates: start: 20120724
  5. STELARA [Suspect]
     Indication: PSORIASIS
     Route: 058
     Dates: start: 20111114, end: 20111114
  6. ISCOTIN [Suspect]
     Indication: PROPHYLAXIS
     Route: 048
     Dates: start: 20110926, end: 20111101
  7. ISCOTIN [Suspect]
     Indication: PROPHYLAXIS
     Route: 048
     Dates: start: 20120319, end: 20120611
  8. PYDOXAL [Concomitant]
     Indication: PROPHYLAXIS
     Route: 048
     Dates: start: 20120319, end: 20120611
  9. PYDOXAL [Concomitant]
     Indication: PROPHYLAXIS
     Route: 048
     Dates: end: 20111101
  10. OXAROL [Concomitant]
     Indication: PSORIASIS
     Dosage: Q.S.
     Route: 061
  11. OXAROL [Concomitant]
     Indication: PSORIASIS
     Dosage: Q.S.
     Route: 061
     Dates: start: 20120724
  12. ANTEBATE [Concomitant]
     Indication: PSORIASIS
     Dosage: Q.S.
     Route: 061
  13. ANTEBATE [Concomitant]
     Indication: PSORIASIS
     Dosage: Q.S.
     Route: 061
     Dates: start: 20120724
  14. NEORAL [Concomitant]
     Indication: PSORIASIS
     Dosage: Q.S.
     Route: 048
     Dates: end: 20111101
  15. NEORAL [Concomitant]
     Indication: PSORIASIS
     Dosage: Q.S.
     Route: 048
     Dates: start: 20111102, end: 20111114

REACTIONS (1)
  - Hepatic function abnormal [Recovered/Resolved]
